FAERS Safety Report 4597542-5 (Version None)
Quarter: 2005Q1

REPORT INFORMATION
  Report Type: 
  Country: None (occurrence: None)
  Receive Date: 20050303
  Receipt Date: 20050224
  Transmission Date: 20050727
  Serious: Yes (Other)
  Sender: FDA-Public Use
  Company Number: PHBS2005ES02822

PATIENT
  Age: 10 Year
  Sex: Male

DRUGS (1)
  1. MELLARIL [Suspect]
     Indication: ANXIETY
     Dosage: 15 MG/D
     Route: 048
     Dates: start: 20030101, end: 20040401

REACTIONS (4)
  - ARRHYTHMIA [None]
  - ATRIOVENTRICULAR BLOCK SECOND DEGREE [None]
  - ELECTROCARDIOGRAM QT PROLONGED [None]
  - SYNCOPE [None]
